FAERS Safety Report 5197806-0 (Version None)
Quarter: 2006Q4

REPORT INFORMATION
  Report Type: 
  Country: None (occurrence: None)
  Receive Date: 20061228
  Receipt Date: 20061213
  Transmission Date: 20070319
  Serious: Yes (Hospitalization, Other)
  Sender: FDA-Public Use
  Company Number: 2006SP004540

PATIENT
  Age: 36 Year
  Sex: Male
  Weight: 63 kg

DRUGS (2)
  1. INTRON A [Suspect]
     Indication: HEPATITIS C
     Dosage: 6 MIU, TIW, IM
     Route: 030
     Dates: start: 20050801, end: 20060101
  2. REBETOL [Suspect]
     Indication: HEPATITIS C
     Dosage: 600 MG, QD; PO
     Route: 048
     Dates: start: 20050801

REACTIONS (1)
  - CHRONIC INFLAMMATORY DEMYELINATING POLYRADICULONEUROPATHY [None]
